FAERS Safety Report 4929048-5 (Version None)
Quarter: 2006Q1

REPORT INFORMATION
  Report Type: 
  Country: None (occurrence: None)
  Receive Date: 20060301
  Receipt Date: 20050929
  Transmission Date: 20060701
  Serious: Yes (Disabling)
  Sender: FDA-Public Use
  Company Number: US-MERCK-0510USA00201

PATIENT
  Age: 54 Year
  Sex: Male
  Weight: 91 kg

DRUGS (8)
  1. VIOXX [Suspect]
     Route: 048
     Dates: start: 20020201, end: 20030201
  2. PLAQUENIL [Concomitant]
     Route: 065
  3. [THERAPY UNSPECIFIED] [Concomitant]
     Route: 065
  4. PROTONIX [Concomitant]
     Route: 065
  5. ZANAFLEX [Concomitant]
     Route: 065
  6. PAXIL CR [Concomitant]
     Route: 065
  7. COUMADIN [Concomitant]
     Route: 065
  8. PROCARDIA XL [Concomitant]
     Route: 065

REACTIONS (4)
  - BRAIN STEM INFARCTION [None]
  - CEREBROVASCULAR ACCIDENT [None]
  - HYPERTENSION [None]
  - LIPIDS INCREASED [None]
